FAERS Safety Report 5864859-3 (Version None)
Quarter: 2008Q3

REPORT INFORMATION
  Report Type: 
  Country: None (occurrence: None)
  Receive Date: 20080829
  Receipt Date: 20080722
  Transmission Date: 20090109
  Serious: No
  Sender: FDA-Public Use
  Company Number: US-ABBOTT-08P-163-0464531-00

PATIENT
  Sex: Male
  Weight: 77.18 kg

DRUGS (1)
  1. SIMCOR [Suspect]
     Indication: BLOOD CHOLESTEROL INCREASED
     Route: 048
     Dates: start: 20080710, end: 20080718

REACTIONS (3)
  - DYSGEUSIA [None]
  - MALAISE [None]
  - OROPHARYNGEAL PAIN [None]
